FAERS Safety Report 10414977 (Version 1)
Quarter: 2014Q2

REPORT INFORMATION
  Report Type: Spontaneous
  Country: US (occurrence: None)
  Receive Date: 20140604
  Receipt Date: 20140604
  Transmission Date: 20141212
  Serious: No
  Sender: FDA-Public Use
  Company Number: 163-POMAL-14032741

PATIENT
  Age: 55 Year
  Sex: Male

DRUGS (4)
  1. POMALYST (POMALIDOMIDE) (4 MILLIGRAM, CAPSULES) [Suspect]
     Indication: PLASMA CELL MYELOMA
     Route: 048
     Dates: start: 201309
  2. PROZAC (FLUOXETINE HYDROCHLORIDE) [Concomitant]
  3. ZOMETA (ZOLEDRONIC ACID) [Concomitant]
  4. ASA (ACETYLSALICYLIC ACID [Concomitant]

REACTIONS (2)
  - Somnolence [None]
  - Fatigue [None]
